FAERS Safety Report 7191120-X (Version None)
Quarter: 2010Q4

REPORT INFORMATION
  Report Type: 
  Country: None (occurrence: None)
  Receive Date: 20101221
  Receipt Date: 20101221
  Transmission Date: 20110411
  Serious: Yes (Death)
  Sender: FDA-Public Use
  Company Number: None

PATIENT
  Age: 46 Year
  Sex: Male

DRUGS (2)
  1. PREDNISONE TAB [Suspect]
     Indication: TRANSPLANT
     Dosage: 7MG QD BUCCAL
     Route: 002
     Dates: start: 20101001, end: 20101101
  2. PROGRAF [Suspect]
     Dosage: 360MG BID BUCCAL
     Route: 002

REACTIONS (1)
  - DEATH [None]
